FAERS Safety Report 23857833 (Version 2)
Quarter: 2024Q2

REPORT INFORMATION
  Report Type: Spontaneous
  Country: IT (occurrence: IT)
  Receive Date: 20240515
  Receipt Date: 20240517
  Transmission Date: 20240716
  Serious: Yes (Other)
  Sender: FDA-Public Use
  Company Number: IT-MLMSERVICE-20240503-PI048517-00202-1

PATIENT
  Age: 68 Year
  Sex: Female

DRUGS (9)
  1. LINEZOLID [Suspect]
     Active Substance: LINEZOLID
     Indication: Arthritis infective
     Dosage: 600 MG, 2X/DAY
     Route: 048
     Dates: start: 20211015
  2. LINEZOLID [Suspect]
     Active Substance: LINEZOLID
     Indication: Mycobacterium abscessus infection
     Dosage: DOSAGE WAS ADJUSTED ON THERAPEUTIC DRUG MONITORING (TDM) FOR BETTER TOLERANCE AND EFFICACY.
     Route: 048
     Dates: start: 20211111, end: 20220506
  3. AMIKACIN [Concomitant]
     Active Substance: AMIKACIN
     Indication: Mycobacterium abscessus infection
     Dosage: DOSAGE WAS ADJUSTED ON THERAPEUTIC DRUG MONITORING (TDM) FOR BETTER TOLERANCE AND EFFICACY.
     Route: 048
     Dates: start: 20211111, end: 20220506
  4. AMIKACIN [Concomitant]
     Active Substance: AMIKACIN
     Indication: Arthritis infective
     Dosage: 750 MG, 1X/DAY
     Route: 048
     Dates: start: 20211015
  5. AMIKACIN [Concomitant]
     Active Substance: AMIKACIN
     Dosage: 1500 MG (20 MG/KG) 3 TIMES PER WEEK
     Dates: start: 20211216, end: 20220506
  6. GENTAMICIN [Concomitant]
     Active Substance: GENTAMICIN
     Indication: Arthritis infective
     Dosage: UNK
     Dates: start: 20211021
  7. GENTAMICIN [Concomitant]
     Active Substance: GENTAMICIN
     Indication: Mycobacterium abscessus infection
  8. CLOFAZIMINE [Concomitant]
     Active Substance: CLOFAZIMINE
     Indication: Mycobacterium abscessus infection
     Dosage: 100 MG, 1X/DAY
     Dates: start: 20211216, end: 20220506
  9. CLOFAZIMINE [Concomitant]
     Active Substance: CLOFAZIMINE
     Indication: Arthritis infective

REACTIONS (5)
  - Neuropathy peripheral [Recovered/Resolved]
  - Deafness neurosensory [Unknown]
  - Glomerular filtration rate decreased [Unknown]
  - Off label use [Unknown]
  - Drug effective for unapproved indication [Unknown]
